FAERS Safety Report 4609076-X (Version None)
Quarter: 2005Q1

REPORT INFORMATION
  Report Type: 
  Country: None (occurrence: None)
  Receive Date: 20050311
  Receipt Date: 20050309
  Transmission Date: 20050727
  Serious: Yes (Life-Threatening, Hospitalization)
  Sender: FDA-Public Use
  Company Number: 200510019BWH

PATIENT
  Age: 66 Year
  Sex: Female
  Weight: 73.5734 kg

DRUGS (22)
  1. AVELOX [Suspect]
     Indication: ASTHMA
     Dosage: 400 MG, QD, ORAL
     Route: 048
     Dates: start: 20041220, end: 20041227
  2. AVELOX [Suspect]
     Indication: BRONCHITIS
     Dosage: 400 MG, QD, ORAL
     Route: 048
     Dates: start: 20041220, end: 20041227
  3. ZOCOR [Concomitant]
  4. ZETIA [Concomitant]
  5. PRAVACHOL [Concomitant]
  6. K-DUR 10 [Concomitant]
  7. THEOPHYLLINE [Concomitant]
  8. GLYBURIDE [Concomitant]
  9. METFORMIN HCL [Concomitant]
  10. CLARINEX/USA/ [Concomitant]
  11. RANITIDINE [Concomitant]
  12. ALBUTEROL [Concomitant]
  13. CROMOLYN SODIUM [Concomitant]
  14. FLOVENT [Concomitant]
  15. CALCIUM WITH VITAMIN D [Concomitant]
  16. MULTIVITAMIN [Concomitant]
  17. VITAMIN C [Concomitant]
  18. VITAMIN E [Concomitant]
  19. SALENIUM [Concomitant]
  20. SINGULAIR [Concomitant]
  21. PNEUMOVAX 23 [Concomitant]
  22. FLU SHOT [Concomitant]

REACTIONS (9)
  - ATRIAL FIBRILLATION [None]
  - ATRIOVENTRICULAR BLOCK COMPLETE [None]
  - BLOOD CREATININE INCREASED [None]
  - BLOOD POTASSIUM INCREASED [None]
  - BLOOD UREA INCREASED [None]
  - DIASTOLIC DYSFUNCTION [None]
  - HYPOTENSION [None]
  - PULMONARY OEDEMA [None]
  - VENTRICULAR EXTRASYSTOLES [None]
